FAERS Safety Report 5193594-2 (Version None)
Quarter: 2006Q4

REPORT INFORMATION
  Report Type: 
  Country: None (occurrence: None)
  Receive Date: 20061228
  Receipt Date: 20060922
  Transmission Date: 20070319
  Serious: No
  Sender: FDA-Public Use
  Company Number: US-GLAXOSMITHKLINE-A0621832A

PATIENT
  Age: 40 Year
  Sex: Female

DRUGS (1)
  1. FLONASE [Suspect]
     Dosage: 4SPR PER DAY
     Route: 045
     Dates: start: 20050101, end: 20060801

REACTIONS (1)
  - UPPER RESPIRATORY TRACT INFECTION [None]
